FAERS Safety Report 8199685-6 (Version None)
Quarter: 2012Q1

REPORT INFORMATION
  Report Type: 
  Country: None (occurrence: None)
  Receive Date: 20120311
  Receipt Date: 20120229
  Transmission Date: 20120608
  Serious: Yes (Other)
  Sender: FDA-Public Use
  Company Number: BR-ASTRAZENECA-2012SE06528

PATIENT
  Age: 53 Year
  Sex: Female
  Weight: 76 kg

DRUGS (3)
  1. UNKNOWN [Concomitant]
     Indication: ABDOMINAL PAIN UPPER
     Dosage: DAILY
     Route: 048
  2. OMEPRAZOLE [Suspect]
     Indication: ABDOMINAL PAIN UPPER
     Route: 048
     Dates: start: 20111101, end: 20120127
  3. CLONAZEPAM [Concomitant]
     Indication: INSOMNIA
     Dosage: DAILY
     Route: 048

REACTIONS (3)
  - DEVICE BREAKAGE [None]
  - ABDOMINAL PAIN UPPER [None]
  - DRUG INEFFECTIVE [None]
